FAERS Safety Report 6072206-X (Version None)
Quarter: 2009Q1

REPORT INFORMATION
  Report Type: 
  Country: None (occurrence: None)
  Receive Date: 20090206
  Receipt Date: 20090206
  Transmission Date: 20090719
  Serious: Yes (Other)
  Sender: FDA-Public Use
  Company Number: None

PATIENT
  Age: 55 Year
  Sex: Female
  Weight: 49.8957 kg

DRUGS (1)
  1. ACTONEL [Suspect]
     Indication: OSTEOPOROSIS
     Dosage: 10MG MONTHLY PO
     Route: 048
     Dates: start: 20090204, end: 20090204

REACTIONS (2)
  - DRUG INEFFECTIVE [None]
  - NECK PAIN [None]
